FAERS Safety Report 12872202 (Version 2)
Quarter: 2016Q4

REPORT INFORMATION
  Report Type: Spontaneous
  Country: IE (occurrence: IE)
  Receive Date: 20161021
  Receipt Date: 20161110
  Transmission Date: 20170207
  Serious: Yes (Hospitalization)
  Sender: FDA-Public Use
  Company Number: IE-009507513-1610IRL005615

PATIENT
  Age: 34 Year
  Sex: Female

DRUGS (3)
  1. ORGALUTRAN [Suspect]
     Active Substance: GANIRELIX ACETATE
     Indication: INFERTILITY
     Dosage: UNK
     Route: 058
  2. PUREGON [Suspect]
     Active Substance: FOLLITROPIN
     Indication: INFERTILITY
     Dosage: 150 IU, QD
     Route: 058
  3. PREGNYL [Suspect]
     Active Substance: CHORIOGONADOTROPIN ALFA
     Indication: INFERTILITY
     Dosage: 10000 IU DAILY
     Route: 058

REACTIONS (3)
  - Ovarian hyperstimulation syndrome [Recovered/Resolved]
  - Abdominal discomfort [Recovered/Resolved]
  - Ascites [Recovered/Resolved]

NARRATIVE: CASE EVENT DATE: 20160831
